FAERS Safety Report 13902605 (Version 1)
Quarter: 2017Q3

REPORT INFORMATION
  Report Type: Spontaneous
  Country: US (occurrence: US)
  Receive Date: 20170824
  Receipt Date: 20170824
  Transmission Date: 20171127
  Serious: Yes (Other)
  Sender: FDA-Public Use
  Company Number: US-ROCHE-1129974

PATIENT
  Sex: Female

DRUGS (10)
  1. BENADRYL [Concomitant]
     Active Substance: DIPHENHYDRAMINE HYDROCHLORIDE
  2. TAXOTERE [Concomitant]
     Active Substance: DOCETAXEL
  3. DECADRON [Concomitant]
     Active Substance: DEXAMETHASONE
     Route: 065
     Dates: start: 19990722
  4. TAXOL [Concomitant]
     Active Substance: PACLITAXEL
     Route: 065
  5. GEMCITABINE [Concomitant]
     Active Substance: GEMCITABINE\GEMCITABINE HYDROCHLORIDE
  6. TAMOXIFEN [Concomitant]
     Active Substance: TAMOXIFEN
  7. FEMARA [Concomitant]
     Active Substance: LETROZOLE
  8. HERCEPTIN [Suspect]
     Active Substance: TRASTUZUMAB
     Indication: BREAST CANCER METASTATIC
     Route: 065
  9. LIPITOR [Concomitant]
     Active Substance: ATORVASTATIN CALCIUM
  10. TAGAMET [Concomitant]
     Active Substance: CIMETIDINE
     Route: 065
     Dates: start: 19990722

REACTIONS (15)
  - Pain [Unknown]
  - Musculoskeletal stiffness [Unknown]
  - Chest discomfort [Unknown]
  - Paraesthesia [Unknown]
  - Disease progression [Unknown]
  - Diarrhoea [Unknown]
  - Abdominal pain [Unknown]
  - Decreased appetite [Unknown]
  - Headache [Unknown]
  - Nausea [Unknown]
  - Rash [Unknown]
  - Cystitis [Recovered/Resolved]
  - Discomfort [Unknown]
  - Dyspnoea [Recovering/Resolving]
  - Eye swelling [Unknown]
